FAERS Safety Report 8709966 (Version 2)
Quarter: 2013Q4

REPORT INFORMATION
  Report Type: Spontaneous
  Country: US (occurrence: US)
  Receive Date: 20120806
  Receipt Date: 20131031
  Transmission Date: 20140711
  Serious: Yes (Life-Threatening, Hospitalization, Other)
  Sender: FDA-Public Use
  Company Number: US-MERCK-1207USA011328

PATIENT
  Age: 72 Year
  Sex: Male

DRUGS (12)
  1. ZOCOR [Suspect]
     Dosage: 80 MG, QD
     Route: 048
  2. CARBOPLATIN [Suspect]
     Dosage: 4 IN 1 CYCLICAL
  3. GEMCITABINE [Suspect]
     Dosage: 4 IN 1 CYCLICAL
  4. OMEPRAZOLE [Suspect]
     Dosage: 20 MG, UNK
     Route: 048
  5. AMOXICILLIN [Suspect]
     Dosage: 500 MG, TID
     Route: 048
  6. CORACTEN [Concomitant]
     Dosage: 30 MG, QD
  7. CLARITHROMYCIN [Concomitant]
     Dosage: 3 IN 1 CYCLICAL
  8. CIPROFLOXACIN [Concomitant]
     Dosage: 3 IN 1 CYCLICAL
  9. CHLORDIAZEPOXIDE [Concomitant]
     Dosage: 10 MG, QID
  10. ATENOLOL [Concomitant]
     Dosage: 50 MG, QD
  11. GRANISETRON [Concomitant]
     Route: 048
  12. ASPIRIN [Concomitant]
     Dosage: 75 MG, QD

REACTIONS (2)
  - Renal failure acute [Unknown]
  - Rhabdomyolysis [Unknown]
